FAERS Safety Report 21897925 (Version 3)
Quarter: 2023Q1

REPORT INFORMATION
  Report Type: Spontaneous
  Country: US (occurrence: US)
  Receive Date: 20230123
  Receipt Date: 20230309
  Transmission Date: 20230418
  Serious: No
  Sender: FDA-Public Use
  Company Number: US-PFIZER INC-PV202300012711

PATIENT
  Age: 76 Year
  Sex: Male
  Weight: 95.238 kg

DRUGS (2)
  1. TALZENNA [Suspect]
     Active Substance: TALAZOPARIB TOSYLATE
     Indication: Lung neoplasm malignant
     Dosage: 0.75 MG, DAILY
     Dates: start: 20221212
  2. TALZENNA [Suspect]
     Active Substance: TALAZOPARIB TOSYLATE
     Dosage: 0.75 MG, 1X/DAY
     Dates: start: 20221213

REACTIONS (6)
  - Full blood count abnormal [Not Recovered/Not Resolved]
  - White blood cell count decreased [Unknown]
  - Haematocrit decreased [Unknown]
  - Glomerular filtration rate decreased [Unknown]
  - Neoplasm progression [Unknown]
  - Off label use [Unknown]

NARRATIVE: CASE EVENT DATE: 20230213
